FAERS Safety Report 9146834 (Version 1)
Quarter: 2013Q1

REPORT INFORMATION
  Report Type: Spontaneous
  Country: IL (occurrence: None)
  Receive Date: 20130220
  Receipt Date: 20130220
  Transmission Date: 20140127
  Serious: Yes (Death, Life-Threatening, Hospitalization)
  Sender: FDA-Public Use
  Company Number: SYM-2013-00479

PATIENT
  Age: 61 Year
  Sex: Male

DRUGS (25)
  1. FLUOROURACIL [Suspect]
     Indication: COLORECTAL CANCER METASTATIC
     Dosage: EVERY OTHER WEEK,  INTRAVENOUS  BOLUS?09/09/2012  -  09/09/2012
     Route: 040
     Dates: start: 20120909, end: 20120909
  2. AFLIBERCEPT [Suspect]
     Indication: COLORECTAL CANCER METASTATIC
     Dosage: EVERY OTHER WEEK,  INTRAVENOUS  DRIP?09/09/2012  -  09/09/2012
     Route: 041
     Dates: start: 20120909, end: 20120909
  3. IRINOTECAN [Suspect]
     Indication: COLORECTAL CANCER METASTATIC
     Dosage: EVERY OTHER WEEK,  INTRAVENOUS  DRIP?09/09/2012  -  09/09/2012
     Route: 041
     Dates: start: 20120909, end: 20120909
  4. LEUCOVORIN [Suspect]
     Indication: PRODUCT USED FOR UNKNOWN INDICATION
     Dosage: EVERY OTHER WEEK,  INTRAVENOUS  DRIP?09/09/2012  -  09/09/2012
     Route: 041
     Dates: start: 20120909, end: 20120909
  5. DIACEREIN [Suspect]
     Indication: COLORECTAL CANCER METASTATIC
  6. TETANUS VACCINE (TETANUS VACCINE) (UNKNOWN) (TETANUS VACCINE) [Concomitant]
  7. MEGESTROL ACETATE (MEGESTROL ACETATE) (UNKNOWN) (MEGESTROL ACETATE) [Concomitant]
  8. DEXAMETHASONE (DEXAMETHASONE) (UNKNOWN) (DEXAMETHASONE) [Concomitant]
  9. KYTRIL (GRANISETRON HYDROCHLORIDE) (UNKNOWN) (GRANISETRON HYDROCHLORIDE) [Concomitant]
  10. SODIUM BICARBONATE (SODIUM BICARBONATE) (UNKNOWN) (SODIUM BICARBONATE) [Concomitant]
  11. METOCLOPRAMIDE [Concomitant]
  12. FENTANYL (FENTANYL) (UNKNOWN) (FENTANYL) [Concomitant]
  13. IPRATROPIUM BROMIDE (IPRATROPIUM BROMIDE) (UNKNOWN) (IPRATROPIUM BROMIDE) [Concomitant]
  14. LOMOTIL (LOMOTIL) (UNKNOWN) (ATROPINE SULFATE, DIPHENOXYLATE  HYDROCHLORIDE) [Concomitant]
  15. BELLADONNA ALKALOIDS (ATROPA BELLADONNA EXTRACT) (UNKNOWN) (ATROPA BELLADONNA EXTRACT) [Concomitant]
  16. PAPAVERINE  HYDROCHLORIDE (PAPAVERINE  HYDROCHLORIDE) (UNKNOWN) (PAPAVERINE  HYDROCHLORIDE) [Concomitant]
  17. METAMIZOLE SODIUM  (METAMIZOLE  SODIUM) (UNKNOWN) (METAMIZOLE  SODIUM) [Concomitant]
  18. PARACETAMOL (PARACETAMOL) (UNKNOWN) (PARACETAMOL) [Concomitant]
  19. NALOXONE (NALOXONE) (UNKNOWN) (NALOXONE) [Concomitant]
  20. OXYCODONE / PARACETAMOL (OXYCODONE / APAP / 01601701 / ) (UNKNOWN) (OXYCODONE,  PARACETAMOL) [Concomitant]
  21. LANSOPRAZOLE (LANSOPRAZOLE) (UNKNOWN) (LANSOPRAZOLE) [Concomitant]
  22. FOLIC ACID (FOLIC ACID) (UNKNOWN) (FOLIC ACID) [Concomitant]
  23. LATANOPROST (LATANOPROST) (UNKNOWN) (LATANOPROST) [Concomitant]
  24. ACE INHIBITOR NOS (ACE INHIBITORS) (UNKNOWN) (NULL) [Concomitant]
  25. CALCIUM CHANNEL BLOCKERS (CALCIUM CHANNEL BLOCKERS) (UNKNOWN) [Concomitant]

REACTIONS (5)
  - Pulmonary embolism [None]
  - General physical health deterioration [None]
  - Colorectal cancer metastatic [None]
  - Malignant neoplasm progression [None]
  - Asthenia [None]
